FAERS Safety Report 11242836 (Version 3)
Quarter: 2017Q1

REPORT INFORMATION
  Report Type: Report from Study
  Country: US (occurrence: US)
  Receive Date: 20150707
  Receipt Date: 20170130
  Transmission Date: 20170428
  Serious: No
  Sender: FDA-Public Use
  Company Number: PHEH2015US012435

PATIENT
  Age: 59 Year
  Sex: Female

DRUGS (1)
  1. GILENYA [Suspect]
     Active Substance: FINGOLIMOD HYDROCHLORIDE
     Indication: MULTIPLE SCLEROSIS
     Dosage: 0.5 MG, QD
     Route: 048
     Dates: start: 20120507

REACTIONS (7)
  - Amnesia [Not Recovered/Not Resolved]
  - Abasia [Not Recovered/Not Resolved]
  - Nervousness [Unknown]
  - Paraesthesia [Unknown]
  - Product closure issue [Unknown]
  - Type 2 diabetes mellitus [Not Recovered/Not Resolved]
  - Paranoia [Unknown]

NARRATIVE: CASE EVENT DATE: 20150803
